FAERS Safety Report 8817521 (Version 2)
Quarter: 2015Q2

REPORT INFORMATION
  Report Type: Report from Study
  Country: US (occurrence: US)
  Receive Date: 20121004
  Receipt Date: 20150416
  Transmission Date: 20150821
  Serious: Yes (Death)
  Sender: FDA-Public Use
  Company Number: US-ROCHE-1130976

PATIENT
  Sex: Female
  Weight: 57.66 kg

DRUGS (6)
  1. SYNTHROID [Concomitant]
     Active Substance: LEVOTHYROXINE SODIUM
  2. BENADRYL [Concomitant]
     Active Substance: DIPHENHYDRAMINE HYDROCHLORIDE
  3. LEVOXYL [Concomitant]
     Active Substance: LEVOTHYROXINE SODIUM
  4. CALTRATE [Concomitant]
     Active Substance: CALCIUM CARBONATE
  5. TYLENOL [Concomitant]
     Active Substance: ACETAMINOPHEN
     Route: 048
  6. RITUXAN [Suspect]
     Active Substance: RITUXIMAB
     Indication: HODGKIN^S DISEASE
     Route: 042
     Dates: start: 20030324

REACTIONS (6)
  - Death [Fatal]
  - Off label use [Unknown]
  - Dry skin [Unknown]
  - Asthenia [Unknown]
  - Fatigue [Unknown]
  - Somnolence [Unknown]
